FAERS Safety Report 7984798-1 (Version None)
Quarter: 2011Q4

REPORT INFORMATION
  Report Type: 
  Country: None (occurrence: None)
  Receive Date: 20111216
  Receipt Date: 20110919
  Transmission Date: 20120403
  Serious: No
  Sender: FDA-Public Use
  Company Number: US-ALLERGAN-1112053US

PATIENT
  Sex: Female

DRUGS (1)
  1. LATISSE [Suspect]
     Indication: GROWTH OF EYELASHES
     Dosage: 1 GTT, QD
     Dates: start: 20110501, end: 20110601

REACTIONS (6)
  - EYELIDS PRURITUS [None]
  - OCULAR HYPERAEMIA [None]
  - THERAPY CESSATION [None]
  - SKIN HYPERPIGMENTATION [None]
  - GROWTH OF EYELASHES [None]
  - TRICHORRHEXIS [None]
